FAERS Safety Report 9240049 (Version 1)
Quarter: 2013Q2

REPORT INFORMATION
  Report Type: Spontaneous
  Country: US (occurrence: None)
  Receive Date: 20130417
  Receipt Date: 20130417
  Transmission Date: 20140414
  Serious: Yes (Death, Hospitalization)
  Sender: FDA-Public Use
  Company Number: FK201301156

PATIENT
  Age: 69 Year
  Sex: Male

DRUGS (20)
  1. IRINOTECAN HYDROCHLORIDE [Suspect]
     Indication: SMALL CELL LUNG CANCER
  2. BAL8557 [Suspect]
     Indication: ZYGOMYCOSIS
     Dosage: UID/QD, INTRAVENOUS (NOT OTHERWISE SPECIFIED)
     Route: 042
     Dates: start: 20110731, end: 20120804
  3. ASPIRIN (ACETYLSALICYLIC ACID) [Concomitant]
  4. GLIPIZIDE (GLIPIZIDE) [Concomitant]
  5. MORPHINE [Concomitant]
  6. PER-COLACE (PERI-COLACE) [Concomitant]
  7. MARINOL [Concomitant]
  8. TOBRAMYCIN (TOBRAMYCIN) [Concomitant]
  9. AMBIEN (ZOLPIDEM TARTRATE) [Concomitant]
  10. SIMVASTATIN (SIMVASTATIN) [Concomitant]
  11. FLONASE (FLUTICASONE PROPIONATE) [Concomitant]
  12. COMPAZINE (PROCHLORPERAZINE EDISYLATE) [Concomitant]
  13. ZOFRAN (ONDANSETRON) [Concomitant]
  14. ERYTHROMYCIN (ERYTHROMYCIN) [Concomitant]
  15. ALBUTEROL (SALBUTAMOL) [Concomitant]
  16. CEPACOL (CEPACOL ANESTHETIC) [Concomitant]
  17. METFORMIN (METFORMIN) [Concomitant]
  18. PREDNISONE (PREDNISONE) [Concomitant]
  19. PRILOSEC [Concomitant]
  20. ZOLOFT (SERTRALINE) [Concomitant]

REACTIONS (7)
  - Small cell lung cancer [None]
  - Malignant neoplasm progression [None]
  - Abdominal pain [None]
  - Escherichia bacteraemia [None]
  - Nausea [None]
  - Vomiting [None]
  - Diarrhoea [None]
